FAERS Safety Report 16907552 (Version 1)
Quarter: 2019Q4

REPORT INFORMATION
  Report Type: Spontaneous
  Country: US (occurrence: US)
  Receive Date: 20191011
  Receipt Date: 20191011
  Transmission Date: 20200122
  Serious: Yes (Other)
  Sender: FDA-Public Use
  Company Number: US-ABBVIE-19K-163-2956766-00

PATIENT

DRUGS (2)
  1. LUPRON [Suspect]
     Active Substance: LEUPROLIDE ACETATE
     Indication: ENDOMETRIOSIS
     Route: 065
  2. ORILISSA [Suspect]
     Active Substance: ELAGOLIX SODIUM
     Indication: ENDOMETRIOSIS
     Route: 048
     Dates: start: 201907

REACTIONS (7)
  - Appendicectomy [Unknown]
  - Therapeutic product effect decreased [Unknown]
  - Night sweats [Unknown]
  - Dysmenorrhoea [Unknown]
  - Amenorrhoea [Unknown]
  - Endometriosis [Unknown]
  - Hot flush [Unknown]

NARRATIVE: CASE EVENT DATE: 2019
